FAERS Safety Report 10213262 (Version 2)
Quarter: 2014Q2

REPORT INFORMATION
  Report Type: Spontaneous
  Country: US (occurrence: None)
  Receive Date: 20140529
  Receipt Date: 20140620
  Transmission Date: 20141212
  Serious: Yes (Hospitalization)
  Sender: FDA-Public Use
  Company Number: UNT-2014-000175

PATIENT
  Age: 34 Year
  Sex: Female
  Weight: 99.8 kg

DRUGS (3)
  1. REMODULIN (TREPROSTINIL SODIUM) INJECTION, 5MG/ML [Suspect]
     Indication: PULMONARY ARTERIAL HYPERTENSION
     Dosage: 0.092 UG/KG/MIN, CONTINUING, IV DRIP
     Route: 041
     Dates: start: 20091106
  2. SILDENAFIL (SILDENAFIL) [Concomitant]
  3. COUMADIN (WARFARIN SODIUM) [Concomitant]

REACTIONS (3)
  - Swelling [None]
  - Condition aggravated [None]
  - Cardiac failure congestive [None]
